FAERS Safety Report 25622057 (Version 1)
Quarter: 2025Q3

REPORT INFORMATION
  Report Type: Spontaneous
  Country: SG (occurrence: SG)
  Receive Date: 20250730
  Receipt Date: 20250730
  Transmission Date: 20251021
  Serious: Yes (Other)
  Sender: STRIDES
  Company Number: SG-STRIDES ARCOLAB LIMITED-2025SP009406

PATIENT
  Age: 71 Year
  Sex: Female

DRUGS (2)
  1. MYCOPHENOLATE MOFETIL [Suspect]
     Active Substance: MYCOPHENOLATE MOFETIL
     Indication: Sjogren^s syndrome
     Route: 065
  2. NINTEDANIB [Concomitant]
     Active Substance: NINTEDANIB
     Indication: Interstitial lung disease
     Route: 065

REACTIONS (4)
  - Condition aggravated [Unknown]
  - Infection [Unknown]
  - Drug intolerance [Unknown]
  - Off label use [Unknown]
